FAERS Safety Report 9426457 (Version 1)
Quarter: 2013Q3

REPORT INFORMATION
  Report Type: Spontaneous
  Country: NL (occurrence: NL)
  Receive Date: 20130730
  Receipt Date: 20130730
  Transmission Date: 20140515
  Serious: Yes (Hospitalization, Other)
  Sender: FDA-Public Use
  Company Number: NL-SUN PHARMACEUTICAL INDUSTRIES LTD-2013SUN01084

PATIENT
  Age: 60 Year
  Sex: Male

DRUGS (7)
  1. OLANZAPINE TABLETS [Suspect]
     Indication: DELIRIUM
     Route: 065
  2. OLANZAPINE TABLETS [Interacting]
     Dosage: 5 MG/ DAY
     Route: 065
  3. PRAMIPEXOLE [Interacting]
     Indication: RESTLESS LEGS SYNDROME
     Dosage: 0.125 MG ONCE/DAY IN THE EVENING
     Route: 065
  4. LITHIUM [Concomitant]
     Indication: BIPOLAR I DISORDER
  5. MIRTAZAPINE [Concomitant]
     Dosage: 30 MG/DAY
  6. MIRTAZAPINE [Concomitant]
     Dosage: 15 MG/DAY
  7. OXAZEPAM [Concomitant]
     Dosage: 10?30 MG/ DAY

REACTIONS (6)
  - Drug interaction [Recovering/Resolving]
  - Bipolar I disorder [Recovering/Resolving]
  - Mania [Recovering/Resolving]
  - Agitation [Recovering/Resolving]
  - Insomnia [Recovering/Resolving]
  - Tremor [Recovering/Resolving]
